FAERS Safety Report 13653306 (Version 1)
Quarter: 2017Q2

REPORT INFORMATION
  Report Type: Spontaneous
  Country: US (occurrence: US)
  Receive Date: 20170614
  Receipt Date: 20170614
  Transmission Date: 20170830
  Serious: No
  Sender: FDA-Public Use
  Company Number: US-ROCHE-1319542

PATIENT
  Sex: Female

DRUGS (3)
  1. XELODA [Suspect]
     Active Substance: CAPECITABINE
     Indication: BREAST CANCER
  2. IBUPROFEN. [Concomitant]
     Active Substance: IBUPROFEN
  3. XELODA [Suspect]
     Active Substance: CAPECITABINE
     Indication: COLON CANCER
     Dosage: 14 DAYS ON, 7 DAYS OFF
     Route: 048
     Dates: start: 20131026

REACTIONS (5)
  - Palmar-plantar erythrodysaesthesia syndrome [Unknown]
  - Neuropathy peripheral [Unknown]
  - Abdominal pain upper [Unknown]
  - Hunger [Unknown]
  - Headache [Unknown]
